FAERS Safety Report 6462055-2 (Version None)
Quarter: 2009Q4

REPORT INFORMATION
  Report Type: 
  Country: None (occurrence: None)
  Receive Date: 20091130
  Receipt Date: 20091126
  Transmission Date: 20100525
  Serious: Yes (Death)
  Sender: FDA-Public Use
  Company Number: PHHY2009JP52149

PATIENT

DRUGS (1)
  1. NEORAL [Suspect]
     Indication: MYASTHENIA GRAVIS
     Route: 048

REACTIONS (1)
  - PNEUMONIA [None]
